FAERS Safety Report 4333226-6 (Version None)
Quarter: 2004Q2

REPORT INFORMATION
  Report Type: 
  Country: None (occurrence: None)
  Receive Date: 20040405
  Receipt Date: 20040405
  Transmission Date: 20050107
  Serious: No
  Sender: FDA-Public Use
  Company Number: None

PATIENT
  Sex: Female
  Weight: 26.4 kg

DRUGS (1)
  1. THIOGUANINE [Suspect]
     Indication: ACUTE LYMPHOCYTIC LEUKAEMIA
     Dosage: 50 MG/M2 DAILY ORAL
     Route: 048
     Dates: start: 20000727, end: 20010510

REACTIONS (5)
  - GASTRIC DISORDER [None]
  - LIVER DISORDER [None]
  - SPLENOMEGALY [None]
  - ULTRASOUND DOPPLER ABNORMAL [None]
  - VARICES OESOPHAGEAL [None]
